FAERS Safety Report 5147347-1 (Version None)
Quarter: 2006Q4

REPORT INFORMATION
  Report Type: 
  Country: None (occurrence: None)
  Receive Date: 20061103
  Receipt Date: 20061020
  Transmission Date: 20070319
  Serious: Yes (Hospitalization)
  Sender: FDA-Public Use
  Company Number: 2006SP003775

PATIENT
  Age: 68 Year
  Sex: Female

DRUGS (5)
  1. XOPENEX [Suspect]
     Indication: CHRONIC OBSTRUCTIVE PULMONARY DISEASE
     Dosage: SEE  IMAGE, INHALATION
     Route: 055
     Dates: start: 20010101, end: 20060101
  2. XOPENEX [Suspect]
     Indication: CHRONIC OBSTRUCTIVE PULMONARY DISEASE
     Dosage: SEE  IMAGE, INHALATION
     Route: 055
     Dates: start: 20060101, end: 20060801
  3. XOPENEX [Suspect]
     Indication: CHRONIC OBSTRUCTIVE PULMONARY DISEASE
     Dosage: SEE  IMAGE, INHALATION
     Route: 055
     Dates: start: 20060801
  4. ATROVENT [Concomitant]
  5. OXYGEN [Concomitant]

REACTIONS (4)
  - CHRONIC OBSTRUCTIVE PULMONARY DISEASE [None]
  - CONDITION AGGRAVATED [None]
  - INCORRECT DRUG ADMINISTRATION DURATION [None]
  - TREATMENT NONCOMPLIANCE [None]
